FAERS Safety Report 5158456-5 (Version None)
Quarter: 2006Q4

REPORT INFORMATION
  Report Type: 
  Country: None (occurrence: None)
  Receive Date: 20061128
  Receipt Date: 20061114
  Transmission Date: 20070319
  Serious: Yes (Hospitalization)
  Sender: FDA-Public Use
  Company Number: PHBS2006JP17842

PATIENT
  Age: 80 Year

DRUGS (2)
  1. TACROLIMUS [Concomitant]
     Indication: MYASTHENIA GRAVIS
  2. NEORAL [Suspect]
     Indication: MYASTHENIA GRAVIS
     Route: 048

REACTIONS (3)
  - BLOOD PRESSURE SYSTOLIC INCREASED [None]
  - HYPERTENSION [None]
  - MYASTHENIA GRAVIS [None]
